FAERS Safety Report 20774894 (Version 1)
Quarter: 2022Q2

REPORT INFORMATION
  Report Type: Spontaneous
  Country: US (occurrence: None)
  Receive Date: 20220501
  Receipt Date: 20220501
  Transmission Date: 20220721
  Serious: No
  Sender: FDA-Public Use
  Company Number: None

PATIENT
  Age: 64 Year
  Sex: Female
  Weight: 49.05 kg

DRUGS (2)
  1. PROLIA [Suspect]
     Active Substance: DENOSUMAB
     Indication: Osteoporosis
     Dosage: OTHER FREQUENCY : BIANNUAL;?
     Route: 058
     Dates: start: 20161001, end: 20211117
  2. PREGABALIN [Concomitant]
     Active Substance: PREGABALIN

REACTIONS (4)
  - Myalgia [None]
  - Arthralgia [None]
  - Bone pain [None]
  - Pain in extremity [None]

NARRATIVE: CASE EVENT DATE: 20211020
